FAERS Safety Report 7502801-X (Version None)
Quarter: 2011Q2

REPORT INFORMATION
  Report Type: 
  Country: None (occurrence: None)
  Receive Date: 20110525
  Receipt Date: 20110324
  Transmission Date: 20111010
  Serious: Yes (Hospitalization, Other)
  Sender: FDA-Public Use
  Company Number: US-BAYER-2011-023327

PATIENT
  Sex: Female
  Weight: 90.703 kg

DRUGS (4)
  1. ANTIBIOTICS [Concomitant]
     Dosage: UNK
     Dates: start: 20090501
  2. ANTIBIOTICS [Concomitant]
     Dosage: UNK
     Dates: start: 20060701
  3. YAZ [Suspect]
     Indication: CONTRACEPTION
     Dosage: UNK
  4. MOTRIN [Concomitant]
     Dosage: UNK

REACTIONS (2)
  - ABDOMINAL PAIN [None]
  - GALLBLADDER DISORDER [None]
